FAERS Safety Report 7386786-5 (Version None)
Quarter: 2011Q1

REPORT INFORMATION
  Report Type: 
  Country: None (occurrence: None)
  Receive Date: 20110323
  Receipt Date: 20110314
  Transmission Date: 20110831
  Serious: Yes (Death)
  Sender: FDA-Public Use
  Company Number: 11-128

PATIENT
  Age: 74 Year
  Sex: Male

DRUGS (5)
  1. ASPIRIN [Suspect]
     Dosage: 75MG/D
     Route: 048
  2. PERINDOPRIL [Suspect]
     Dosage: 20MG/D
     Route: 048
  3. IBUPROFEN [Suspect]
     Dosage: 400MG/D
     Route: 048
  4. SIMVASTATIN [Suspect]
     Route: 048
  5. AMLODIPINE [Suspect]
     Dosage: 5MG/DAY
     Route: 048

REACTIONS (15)
  - RENAL FAILURE ACUTE [None]
  - RENAL TUBULAR NECROSIS [None]
  - LOWER RESPIRATORY TRACT INFECTION [None]
  - COUGH [None]
  - HAEMOPTYSIS [None]
  - RASH [None]
  - WEIGHT DECREASED [None]
  - DERMATOMYOSITIS [None]
  - RESPIRATORY FAILURE [None]
  - DECREASED APPETITE [None]
  - ACUTE RESPIRATORY DISTRESS SYNDROME [None]
  - OROPHARYNGEAL PAIN [None]
  - ALVEOLITIS [None]
  - DRUG ERUPTION [None]
  - MUSCULAR WEAKNESS [None]
